FAERS Safety Report 16782330 (Version 1)
Quarter: 2019Q3

REPORT INFORMATION
  Report Type: Spontaneous
  Country: US (occurrence: US)
  Receive Date: 20190906
  Receipt Date: 20190906
  Transmission Date: 20191005
  Serious: No
  Sender: FDA-Public Use
  Company Number: US-TEVA-2019-US-1103915

PATIENT

DRUGS (1)
  1. GABAPENTIN. [Suspect]
     Active Substance: GABAPENTIN
     Indication: NEURALGIA
     Dosage: DOSE 2800MG
     Route: 065

REACTIONS (3)
  - Cerebral disorder [Unknown]
  - Feeling abnormal [Unknown]
  - Incorrect dose administered [Unknown]
